FAERS Safety Report 6252149-9 (Version None)
Quarter: 2009Q2

REPORT INFORMATION
  Report Type: 
  Country: None (occurrence: None)
  Receive Date: 20090630
  Receipt Date: 20050825
  Transmission Date: 20091009
  Serious: Yes (Hospitalization)
  Sender: FDA-Public Use
  Company Number: US-ROCHE-639605

PATIENT
  Sex: Male

DRUGS (21)
  1. ENFUVIRTIDE [Suspect]
     Route: 065
     Dates: start: 20040923, end: 20041025
  2. ENFUVIRTIDE [Suspect]
     Route: 065
     Dates: start: 20041027, end: 20060216
  3. ENFUVIRTIDE [Suspect]
     Route: 065
     Dates: start: 20060316, end: 20061010
  4. INVIRASE [Concomitant]
     Dates: start: 20040923, end: 20041025
  5. INVIRASE [Concomitant]
     Dates: start: 20041027, end: 20060316
  6. KALETRA [Concomitant]
     Dates: start: 20040923, end: 20041025
  7. KALETRA [Concomitant]
     Dates: start: 20041027, end: 20060316
  8. TRUVADA [Concomitant]
     Dates: start: 20040923, end: 20041025
  9. EMTRIVA [Concomitant]
     Dates: start: 20041209, end: 20080414
  10. VIDEX [Concomitant]
     Dates: start: 20050523, end: 20080814
  11. NORVIR [Concomitant]
     Dates: start: 20060316, end: 20080814
  12. PREZISTA [Concomitant]
     Dates: start: 20060316, end: 20080814
  13. ISENTRESS [Concomitant]
     Dates: start: 20061219, end: 20080814
  14. DAPSONE [Concomitant]
     Dates: start: 20040923
  15. DIFLUCAN [Concomitant]
     Dates: start: 20040923, end: 20041209
  16. ETHAMBUTOL [Concomitant]
     Dates: start: 20040923, end: 20070619
  17. RIFABUTIN [Concomitant]
     Dates: start: 20040923, end: 20041025
  18. RIFABUTIN [Concomitant]
     Dates: start: 20041027, end: 20041209
  19. RIFABUTIN [Concomitant]
     Dates: start: 20041209, end: 20080814
  20. ZITHROMAX [Concomitant]
     Dates: start: 20041209, end: 20080814
  21. FLUCONAZOLE [Concomitant]
     Dates: start: 20061024, end: 20080814

REACTIONS (1)
  - PERFORATED ULCER [None]
